FAERS Safety Report 13063441 (Version 2)
Quarter: 2017Q4

REPORT INFORMATION
  Report Type: Spontaneous
  Country: NL (occurrence: NL)
  Receive Date: 20161227
  Receipt Date: 20171213
  Transmission Date: 20180320
  Serious: Yes (Hospitalization, Other)
  Sender: FDA-Public Use
  Company Number: NL-JNJFOC-20161208645

PATIENT
  Age: 35 Year
  Sex: Female
  Weight: 71 kg

DRUGS (2)
  1. ZYRTEC [Suspect]
     Active Substance: CETIRIZINE HYDROCHLORIDE
     Route: 065
  2. ZYRTEC [Suspect]
     Active Substance: CETIRIZINE HYDROCHLORIDE
     Indication: ECZEMA
     Route: 065
     Dates: start: 2016, end: 20161127

REACTIONS (7)
  - Intentional product use issue [Unknown]
  - Amnesia [Recovering/Resolving]
  - Drug administration error [Unknown]
  - Alcohol interaction [Recovering/Resolving]
  - Intentional product misuse [Unknown]
  - Aggression [Recovering/Resolving]
  - Loss of consciousness [Recovering/Resolving]

NARRATIVE: CASE EVENT DATE: 2016
